FAERS Safety Report 8009356-4 (Version None)
Quarter: 2011Q4

REPORT INFORMATION
  Report Type: 
  Country: None (occurrence: None)
  Receive Date: 20111221
  Receipt Date: 20111209
  Transmission Date: 20120403
  Serious: Yes (Hospitalization, Other)
  Sender: FDA-Public Use
  Company Number: CL-365-2011

PATIENT
  Age: 64 Year
  Sex: Female

DRUGS (2)
  1. LEVOFLOXACIN [Suspect]
     Indication: LIVER ABSCESS
     Dosage: 500 MG, 1X/DAY
  2. METRONIDAZOLE [Suspect]
     Indication: LIVER ABSCESS
     Dosage: 750 MG, 3X/DAY

REACTIONS (18)
  - DISTURBANCE IN ATTENTION [None]
  - VOMITING [None]
  - FLIGHT OF IDEAS [None]
  - DYSPHAGIA [None]
  - ATAXIA [None]
  - FALL [None]
  - MEMORY IMPAIRMENT [None]
  - HYPOREFLEXIA [None]
  - CENTRAL NERVOUS SYSTEM LESION [None]
  - PERIPHERAL SENSORIMOTOR NEUROPATHY [None]
  - DYSCALCULIA [None]
  - CEREBELLAR SYNDROME [None]
  - NYSTAGMUS [None]
  - ANXIETY [None]
  - TOXIC ENCEPHALOPATHY [None]
  - DYSGEUSIA [None]
  - CONFUSIONAL STATE [None]
  - LUMBAR SPINAL STENOSIS [None]
